FAERS Safety Report 11380992 (Version 1)
Quarter: 2015Q3

REPORT INFORMATION
  Report Type: Spontaneous
  Country: US (occurrence: US)
  Receive Date: 20150814
  Receipt Date: 20150814
  Transmission Date: 20151125
  Serious: No
  Sender: FDA-Public Use
  Company Number: GXBR2014US001910

PATIENT
  Sex: Female

DRUGS (2)
  1. DUOCAINE [Suspect]
     Active Substance: BUPIVACAINE HYDROCHLORIDE\LIDOCAINE HYDROCHLORIDE
     Indication: INFUSION SITE ANAESTHESIA
     Dosage: 1 DF, UNK
     Route: 061
     Dates: start: 20140729
  2. CHEMOTHERAPEUTICS [Concomitant]
     Active Substance: UNSPECIFIED INGREDIENT
     Dosage: UNK DF, UNK

REACTIONS (1)
  - Drug ineffective [Recovered/Resolved]
